FAERS Safety Report 24636814 (Version 1)
Quarter: 2024Q4

REPORT INFORMATION
  Report Type: Spontaneous
  Country: US (occurrence: None)
  Receive Date: 20241119
  Receipt Date: 20241119
  Transmission Date: 20250115
  Serious: Yes (Hospitalization)
  Sender: Public
  Company Number: None

PATIENT
  Sex: Male

DRUGS (6)
  1. VIGABATRIN [Suspect]
     Active Substance: VIGABATRIN
     Route: 048
     Dates: start: 20180606
  2. DIURIL SUS 250/SML [Concomitant]
  3. ERYTHROM ST TAB 250MG [Concomitant]
  4. PULMOZVME [Concomitant]
  5. TOBRAMYCIN [Concomitant]
     Active Substance: TOBRAMYCIN\TOBRAMYCIN SULFATE
  6. TOBRAMYCIN  NEB 300/5ML [Concomitant]

REACTIONS (1)
  - Hospitalisation [None]
